FAERS Safety Report 6097533-1 (Version None)
Quarter: 2009Q1

REPORT INFORMATION
  Report Type: 
  Country: None (occurrence: None)
  Receive Date: 20090227
  Receipt Date: 20080918
  Transmission Date: 20090719
  Serious: No
  Sender: FDA-Public Use
  Company Number: A0749115A

PATIENT
  Sex: Female

DRUGS (1)
  1. IMITREX [Suspect]
     Indication: MIGRAINE
     Route: 065

REACTIONS (6)
  - DYSPNOEA [None]
  - FEELING HOT [None]
  - NASAL DISCOMFORT [None]
  - PALPITATIONS [None]
  - PARAESTHESIA [None]
  - THROAT TIGHTNESS [None]
